FAERS Safety Report 6194449-7 (Version None)
Quarter: 2009Q2

REPORT INFORMATION
  Report Type: 
  Country: None (occurrence: None)
  Receive Date: 20090515
  Receipt Date: 20090504
  Transmission Date: 20091009
  Serious: Yes (Other)
  Sender: FDA-Public Use
  Company Number: GXKR2009ES05618

PATIENT
  Age: 71 Year
  Sex: Female
  Weight: 47 kg

DRUGS (10)
  1. METFORMIN SANDOZ (NGX) (METFORMIN) TABLET, 850MG [Suspect]
     Indication: TYPE 2 DIABETES MELLITUS
     Dosage: 1 DF, TID, ORAL
     Route: 048
     Dates: end: 20090420
  2. GLYBURIDE [Concomitant]
  3. CO VALS (HYDROCHLOROTHIAZIDE, VALSARTAN) [Concomitant]
  4. FLUVASTATIN SODIUM [Concomitant]
  5. NORPRAMIN [Concomitant]
  6. IBUPROFEN [Concomitant]
  7. OMNALIO (CHLORDIAZEPOXIDE HYDROCHLORIDE) [Concomitant]
  8. LORAZEPAM [Concomitant]
  9. MIRTAZAPINE [Concomitant]
  10. SERTRALINE CINFA G [Concomitant]

REACTIONS (7)
  - ANOREXIA [None]
  - COLITIS [None]
  - ERYTHEMA [None]
  - LOSS OF CONSCIOUSNESS [None]
  - NAUSEA [None]
  - PHOTOPHOBIA [None]
  - SYNCOPE [None]
